FAERS Safety Report 8927974 (Version 1)
Quarter: 2012Q4

REPORT INFORMATION
  Report Type: Spontaneous
  Country: US (occurrence: None)
  Receive Date: 20121120
  Receipt Date: 20121120
  Transmission Date: 20130627
  Serious: Yes (Hospitalization, Other)
  Sender: FDA-Public Use
  Company Number: ADR-2012-02097

PATIENT
  Age: 30 Year
  Sex: Male

DRUGS (2)
  1. BACLOFEN [Suspect]
     Indication: SPASTICITY
  2. BACLOFEN [Suspect]
     Indication: SPINAL CORD INJURY

REACTIONS (2)
  - Sepsis [None]
  - Stupor [None]
